FAERS Safety Report 11520014 (Version 1)
Quarter: 2015Q3

REPORT INFORMATION
  Report Type: Spontaneous
  Country: US (occurrence: US)
  Receive Date: 20150918
  Receipt Date: 20150918
  Transmission Date: 20151125
  Serious: No
  Sender: FDA-Public Use
  Company Number: US-RB-068756-14

PATIENT

DRUGS (1)
  1. MUCINEX MAXIMUM STRENGTH [Suspect]
     Active Substance: GUAIFENESIN
     Indication: PRODUCT USED FOR UNKNOWN INDICATION
     Dosage: 1200MG. 1 TABLET IN 12 HOURS ON 07-SEP-2014 + 10-SEP-2014; 1 TABLET 1 DAY ON 2ND + 3RD DAY OF ADMINI
     Route: 065
     Dates: start: 20140907

REACTIONS (1)
  - Dizziness [Not Recovered/Not Resolved]
